FAERS Safety Report 9265565 (Version 1)
Quarter: 2013Q2

REPORT INFORMATION
  Report Type: Other
  Country: DE (occurrence: DE)
  Receive Date: 20130501
  Receipt Date: 20130501
  Transmission Date: 20140414
  Serious: Yes (Hospitalization)
  Sender: FDA-Public Use
  Company Number: DE-ACTAVIS-2013-07180

PATIENT
  Age: 48 Year
  Sex: Female

DRUGS (12)
  1. PANTOPRAZOLE SODIUM (UNKNOWN) [Suspect]
     Indication: PRODUCT USED FOR UNKNOWN INDICATION
     Dosage: 20 MG, DAILY
     Route: 048
     Dates: start: 20130205, end: 20130207
  2. IBUPROFEN (UNKNOWN) [Suspect]
     Indication: PRODUCT USED FOR UNKNOWN INDICATION
     Dosage: UNK
     Route: 048
     Dates: start: 20130203
  3. ABILIFY [Suspect]
     Indication: PRODUCT USED FOR UNKNOWN INDICATION
     Dosage: 25 MG, DAILY
     Route: 048
     Dates: start: 20130201, end: 20130205
  4. ABILIFY [Suspect]
     Dosage: 10 MG, DAILY
     Route: 048
     Dates: start: 20130124, end: 20130131
  5. ABILIFY [Suspect]
     Dosage: 5 MG, DAILY
     Route: 048
     Dates: start: 20130122, end: 20130123
  6. DIPIPERON [Suspect]
     Indication: PRODUCT USED FOR UNKNOWN INDICATION
     Dosage: 40 MG, DAILY
     Route: 048
     Dates: start: 20130204
  7. TAVOR /00273201/ [Suspect]
     Indication: PRODUCT USED FOR UNKNOWN INDICATION
     Dosage: 1 MG, DAILY
     Route: 048
     Dates: start: 20130215
  8. ATOSIL /00033002/ [Suspect]
     Indication: PRODUCT USED FOR UNKNOWN INDICATION
     Dosage: 50 MG, DAILY
     Route: 065
     Dates: end: 20130204
  9. ATOSIL /00033002/ [Suspect]
     Dosage: 25 MG, DAILY
     Route: 065
     Dates: start: 20130123
  10. L-THYROXIN [Concomitant]
     Indication: PRODUCT USED FOR UNKNOWN INDICATION
     Dosage: 75 MICROGRAMS, UNK
     Route: 048
     Dates: start: 20130119
  11. PROMETHAZIN [Concomitant]
     Indication: PRODUCT USED FOR UNKNOWN INDICATION
     Dosage: 50 MG, DAILY
     Route: 048
     Dates: start: 20130128, end: 20130204
  12. PROMETHAZIN [Concomitant]
     Dosage: 25 MG, DAILY
     Route: 048
     Dates: start: 20130123, end: 20130124

REACTIONS (1)
  - Dermatitis allergic [Not Recovered/Not Resolved]
